FAERS Safety Report 7333493-0 (Version None)
Quarter: 2011Q1

REPORT INFORMATION
  Report Type: 
  Country: None (occurrence: None)
  Receive Date: 20110304
  Receipt Date: 20110304
  Transmission Date: 20110831
  Serious: Yes (Other)
  Sender: FDA-Public Use
  Company Number: US-PFIZER INC-US-WYE-H16522310

PATIENT
  Sex: Male
  Weight: 151.47 kg

DRUGS (2)
  1. ACETAMINOPHEN [Concomitant]
     Dosage: UNK
     Route: 065
     Dates: start: 20100522
  2. DESVENLAFAXINE SUCCINATE MONOHYDRATE [Suspect]
     Dosage: 50.0 MG, 1X/DAY
     Route: 048
     Dates: start: 20100526, end: 20100724

REACTIONS (2)
  - DYSPNOEA [None]
  - MUSCLE TWITCHING [None]
